FAERS Safety Report 19847164 (Version 2)
Quarter: 2021Q3

REPORT INFORMATION
  Report Type: Other
  Country: US (occurrence: US)
  Receive Date: 20210917
  Receipt Date: 20210923
  Transmission Date: 20211014
  Serious: Yes (Hospitalization)
  Sender: FDA-Public Use
  Company Number: US-ROCHE-2908393

PATIENT
  Age: 71 Year
  Sex: Female
  Weight: 144.9 kg

DRUGS (24)
  1. OCREVUS [Suspect]
     Active Substance: OCRELIZUMAB
     Indication: PRIMARY PROGRESSIVE MULTIPLE SCLEROSIS
     Dosage: MOST RECENT INFUSION ON 20/AUG/2021
     Route: 065
     Dates: start: 2018
  2. COVID?19 VACCINE [Concomitant]
     Dates: start: 20210326
  3. PROMETHAZINE [Concomitant]
     Active Substance: PROMETHAZINE HYDROCHLORIDE
  4. METRONIDAZOLE. [Concomitant]
     Active Substance: METRONIDAZOLE
  5. ADVAIR HFA [Concomitant]
     Active Substance: FLUTICASONE PROPIONATE\SALMETEROL XINAFOATE
  6. ZOLPIDEM [Concomitant]
     Active Substance: ZOLPIDEM TARTRATE
  7. CLONIDINE. [Concomitant]
     Active Substance: CLONIDINE
  8. METOPROLOL. [Concomitant]
     Active Substance: METOPROLOL
  9. ISOSORBIDE. [Concomitant]
     Active Substance: ISOSORBIDE
  10. NITROGLYCERIN. [Concomitant]
     Active Substance: NITROGLYCERIN
  11. BABY ASPIRIN [Concomitant]
     Active Substance: ASPIRIN
  12. FAMOTIDINE. [Concomitant]
     Active Substance: FAMOTIDINE
  13. SYNTHROID [Concomitant]
     Active Substance: LEVOTHYROXINE SODIUM
  14. AMANTADINE. [Concomitant]
     Active Substance: AMANTADINE HYDROCHLORIDE
  15. DULOXETINE. [Concomitant]
     Active Substance: DULOXETINE
  16. ALLOPURINOL. [Concomitant]
     Active Substance: ALLOPURINOL
  17. VERAPAMIL [Concomitant]
     Active Substance: VERAPAMIL HYDROCHLORIDE
  18. PROMETHAZINE [Concomitant]
     Active Substance: PROMETHAZINE HYDROCHLORIDE
     Indication: MOTION SICKNESS
  19. DIPHENOXYLATE/ATROPINE [Concomitant]
     Active Substance: ATROPINE\DIPHENOXYLATE
  20. INCRUSE ELLIPTA [Concomitant]
     Active Substance: UMECLIDINIUM BROMIDE
  21. GABAPENTIN. [Concomitant]
     Active Substance: GABAPENTIN
  22. ZYRTEC (UNITED STATES) [Concomitant]
  23. FLEXERIL [Concomitant]
     Active Substance: CYCLOBENZAPRINE HYDROCHLORIDE
  24. LISINOPRIL. [Concomitant]
     Active Substance: LISINOPRIL

REACTIONS (1)
  - COVID-19 pneumonia [Not Recovered/Not Resolved]

NARRATIVE: CASE EVENT DATE: 20210902
